FAERS Safety Report 4789509-9 (Version None)
Quarter: 2005Q3

REPORT INFORMATION
  Report Type: 
  Country: None (occurrence: None)
  Receive Date: 20050914
  Receipt Date: 20040916
  Transmission Date: 20060218
  Serious: Yes (Hospitalization)
  Sender: FDA-Public Use
  Company Number: 163-20785-04090433

PATIENT
  Age: 79 Year
  Sex: Male

DRUGS (10)
  1. THALOMID [Suspect]
     Indication: PROSTATE CANCER
     Dosage: 100 MG, AT BEDTIME, ORAL
     Route: 048
     Dates: start: 20040817, end: 20040906
  2. CAPECITABINE (CAPECITABINE) (UNKNOWN) [Suspect]
     Indication: PROSTATE CANCER
     Dosage: 2000 MG, DAILY, ORAL
     Route: 048
     Dates: start: 20040817, end: 20040906
  3. TEMODAR [Suspect]
     Indication: PROSTATE CANCER
     Dosage: 140 MG, DAILY, ORAL
     Route: 048
     Dates: start: 20040817, end: 20040906
  4. METHADONE [Concomitant]
  5. DECADRON [Concomitant]
  6. PEPCID [Concomitant]
  7. FLOMAX [Concomitant]
  8. ZOFRAN [Concomitant]
  9. SENOKOT [Concomitant]
  10. TEVETEN [Concomitant]

REACTIONS (1)
  - CONVULSION [None]
